FAERS Safety Report 20941837 (Version 1)
Quarter: 2022Q2

REPORT INFORMATION
  Report Type: Spontaneous
  Country: US (occurrence: US)
  Receive Date: 20220610
  Receipt Date: 20220610
  Transmission Date: 20220720
  Serious: No
  Sender: FDA-Public Use
  Company Number: US-STRIDES ARCOLAB LIMITED-2022SP003668

PATIENT
  Age: 35 Year
  Sex: Female

DRUGS (13)
  1. PREDNISOLONE [Suspect]
     Active Substance: PREDNISOLONE
     Indication: Primary adrenal insufficiency
     Dosage: 10 MILLIGRAM PER DAY
     Route: 065
  2. PREDNISOLONE [Suspect]
     Active Substance: PREDNISOLONE
     Dosage: UNK, PRENATAL DOSE
     Route: 065
  3. INSULIN LISPRO [Suspect]
     Active Substance: INSULIN LISPRO
     Indication: Type 1 diabetes mellitus
     Dosage: UNK ADMINISTERED VIA INSULIN PUMP (TOTAL OF 34 UNITS DAILY)
     Route: 065
  4. INSULIN LISPRO [Suspect]
     Active Substance: INSULIN LISPRO
     Dosage: UNK, PRENATAL DOSE
     Route: 065
  5. FLUDROCORTISONE [Suspect]
     Active Substance: FLUDROCORTISONE
     Indication: Primary adrenal insufficiency
     Dosage: 0.1 MILLIGRAM PER DAY
     Route: 065
  6. FLUDROCORTISONE [Suspect]
     Active Substance: FLUDROCORTISONE
     Dosage: UNK PRENATAL DOSE
     Route: 065
  7. LEVOTHYROXINE [Suspect]
     Active Substance: LEVOTHYROXINE
     Indication: Autoimmune thyroiditis
     Dosage: 225 MICROGRAM PER DAY
     Route: 065
  8. LEVOTHYROXINE [Suspect]
     Active Substance: LEVOTHYROXINE
     Indication: Hypothyroidism
     Dosage: UNK PRENATAL DOSE
     Route: 065
  9. HYDRALAZINE [Suspect]
     Active Substance: HYDRALAZINE HYDROCHLORIDE
     Indication: Pre-eclampsia
     Dosage: 5 MILLIGRAM
     Route: 042
  10. MAGNESIUM SULFATE [Suspect]
     Active Substance: MAGNESIUM SULFATE
     Indication: Seizure prophylaxis
     Dosage: 2 GRAM PER HOUR
     Route: 042
  11. OXYTOCIN [Suspect]
     Active Substance: OXYTOCIN
     Indication: Procedural haemorrhage
     Dosage: 20 UNITS
     Route: 042
  12. OXYTOCIN [Suspect]
     Active Substance: OXYTOCIN
     Dosage: 10 UNITS
     Route: 015
  13. CARBOPROST [Suspect]
     Active Substance: CARBOPROST
     Indication: Procedural haemorrhage
     Dosage: 250 MICROGRAM
     Route: 030

REACTIONS (1)
  - Maternal exposure during pregnancy [Unknown]
